FAERS Safety Report 5240004-2 (Version None)
Quarter: 2007Q1

REPORT INFORMATION
  Report Type: 
  Country: None (occurrence: None)
  Receive Date: 20070216
  Receipt Date: 20070209
  Transmission Date: 20070707
  Serious: Yes (Hospitalization)
  Sender: FDA-Public Use
  Company Number: JP-MERCK-0701USA04991

PATIENT
  Age: 63 Year
  Sex: Female

DRUGS (1)
  1. DECADRON [Suspect]
     Indication: ASTHMA
     Route: 042
     Dates: start: 20040901

REACTIONS (1)
  - ASTHMA [None]
